FAERS Safety Report 9181134 (Version 1)
Quarter: 2013Q1

REPORT INFORMATION
  Report Type: Spontaneous
  Country: US (occurrence: None)
  Receive Date: 20120618
  Receipt Date: 20120618
  Transmission Date: 20140127
  Serious: Yes (Other)
  Sender: FDA-Public Use
  Company Number: 20120293

PATIENT
  Age: 47 Year
  Sex: Female

DRUGS (1)
  1. SPRIX [Suspect]
     Dosage: 15.75 NASAL
     Route: 045

REACTIONS (3)
  - Blister [None]
  - Rash [None]
  - Vomiting [None]
